FAERS Safety Report 8053821-0 (Version None)
Quarter: 2012Q1

REPORT INFORMATION
  Report Type: 
  Country: None (occurrence: None)
  Receive Date: 20120118
  Receipt Date: 20120113
  Transmission Date: 20120608
  Serious: Yes (Disabling)
  Sender: FDA-Public Use
  Company Number: CA-ABBOTT-12P-028-0893257-00

PATIENT
  Age: 50 Year
  Sex: Male
  Weight: 131.52 kg

DRUGS (9)
  1. PERINDOPRIL ERBUMINE [Suspect]
     Indication: PRODUCT USED FOR UNKNOWN INDICATION
     Route: 048
  2. FUROSEMIDE [Concomitant]
     Indication: PRODUCT USED FOR UNKNOWN INDICATION
  3. ASPIRIN [Concomitant]
     Indication: PRODUCT USED FOR UNKNOWN INDICATION
  4. MARIJUANA [Concomitant]
     Indication: PRODUCT USED FOR UNKNOWN INDICATION
  5. MULTI-VITAMINS [Concomitant]
     Indication: PRODUCT USED FOR UNKNOWN INDICATION
  6. HUMALOG [Concomitant]
     Indication: PRODUCT USED FOR UNKNOWN INDICATION
  7. HUMULIN N [Concomitant]
     Indication: PRODUCT USED FOR UNKNOWN INDICATION
  8. SIMVASTATIN [Concomitant]
     Indication: PRODUCT USED FOR UNKNOWN INDICATION
  9. OXYCODONE HCL AND ACETAMINOPHEN [Concomitant]
     Indication: PRODUCT USED FOR UNKNOWN INDICATION

REACTIONS (28)
  - DIZZINESS [None]
  - ABDOMINAL PAIN UPPER [None]
  - ASTHENIA [None]
  - OEDEMA PERIPHERAL [None]
  - FATIGUE [None]
  - PRODUCT QUALITY ISSUE [None]
  - ELECTROCARDIOGRAM ABNORMAL [None]
  - SWELLING FACE [None]
  - CHILLS [None]
  - OROPHARYNGEAL PAIN [None]
  - HYPOACUSIS [None]
  - PHOTOKERATITIS [None]
  - DYSGEUSIA [None]
  - FEELING HOT [None]
  - PERIORBITAL HAEMATOMA [None]
  - BLINDNESS [None]
  - HEART RATE INCREASED [None]
  - VISUAL IMPAIRMENT [None]
  - DIARRHOEA [None]
  - FEELING ABNORMAL [None]
  - VISION BLURRED [None]
  - DRUG INEFFECTIVE [None]
  - PRODUCT TAMPERING [None]
  - EPISTAXIS [None]
  - HYPERHIDROSIS [None]
  - PYREXIA [None]
  - VISUAL ACUITY REDUCED [None]
  - PRODUCT LOT NUMBER ISSUE [None]
